FAERS Safety Report 7473267 (Version 4)
Quarter: 2018Q2

REPORT INFORMATION
  Report Type: Report from Study
  Country: JP (occurrence: JP)
  Receive Date: 20100714
  Receipt Date: 20180423
  Transmission Date: 20180711
  Serious: Yes (Death)
  Sender: FDA-Public Use
  Company Number: JP-PFIZER INC-2010085014

PATIENT
  Age: 77 Year
  Sex: Male
  Weight: 60.9 kg

DRUGS (9)
  1. SUNITINIB MALATE. [Suspect]
     Active Substance: SUNITINIB MALATE
     Dosage: 25 MG, 1X/DAY
     Route: 048
     Dates: start: 20100120, end: 20100203
  2. SUNITINIB MALATE. [Suspect]
     Active Substance: SUNITINIB MALATE
     Dosage: 25 MG, 1X/DAY
     Dates: start: 20100317, end: 20100331
  3. LOSARTAN POTASSIUM W/HYDROCHLOROTHIAZIDE [Concomitant]
     Active Substance: HYDROCHLOROTHIAZIDE\LOSARTAN POTASSIUM
     Dosage: 62.5 MG, 1X/DAY
     Route: 048
  4. SUNITINIB MALATE. [Suspect]
     Active Substance: SUNITINIB MALATE
     Dosage: 25 MG, 1X/DAY
     Route: 048
     Dates: start: 20100217, end: 20100303
  5. SUNITINIB MALATE. [Suspect]
     Active Substance: SUNITINIB MALATE
     Dosage: 25 MG, 1X/DAY
     Dates: start: 20100414
  6. SUNITINIB MALATE. [Suspect]
     Active Substance: SUNITINIB MALATE
     Indication: RENAL CELL CARCINOMA
     Dosage: 50 MG, 1X/DAY
     Route: 048
     Dates: start: 20091111, end: 20091125
  7. ALOSITOL [Concomitant]
     Active Substance: ALLOPURINOL
     Indication: PROPHYLAXIS
     Dosage: 100 MG, 2X/DAY
     Route: 048
  8. HARNAL [Concomitant]
     Active Substance: TAMSULOSIN HYDROCHLORIDE
     Indication: PROPHYLAXIS
     Dosage: 0.2 MG, 1X/DAY
     Route: 048
  9. ACTOS [Concomitant]
     Active Substance: PIOGLITAZONE HYDROCHLORIDE
     Dosage: 30 MG, 1X/DAY
     Route: 048

REACTIONS (1)
  - Aneurysm ruptured [Fatal]

NARRATIVE: CASE EVENT DATE: 20100421
